FAERS Safety Report 4263733-6 (Version None)
Quarter: 2004Q1

REPORT INFORMATION
  Report Type: 
  Country: None (occurrence: None)
  Receive Date: 20040102
  Receipt Date: 20031218
  Transmission Date: 20041129
  Serious: Yes (Other)
  Sender: FDA-Public Use
  Company Number: US_031198570

PATIENT
  Age: 61 Year
  Sex: Male
  Weight: 90 kg

DRUGS (9)
  1. HUMATROPE [Suspect]
     Indication: GROWTH HORMONE DEFICIENCY
     Dosage: 0.18 MG/11 DAY
     Dates: start: 20001225, end: 20031027
  2. HYDROCORTISONE [Concomitant]
  3. LEVOTHYROXINE SODIUM [Concomitant]
  4. ANDROGEL [Concomitant]
  5. DDAVP [Concomitant]
  6. VERAPAMIL [Concomitant]
  7. PROZAC [Concomitant]
  8. ENALPRIL [Concomitant]
  9. MAXZIDE [Concomitant]

REACTIONS (1)
  - MALIGNANT MELANOMA [None]
